FAERS Safety Report 7390347-1 (Version None)
Quarter: 2011Q1

REPORT INFORMATION
  Report Type: 
  Country: None (occurrence: None)
  Receive Date: 20110325
  Receipt Date: 20110310
  Transmission Date: 20110831
  Serious: Yes (Hospitalization)
  Sender: FDA-Public Use
  Company Number: CIO11005356

PATIENT
  Age: 25 Year
  Sex: Female

DRUGS (8)
  1. NYQUIL OR NYQUIL D COLD/FLU RELIEF ALCOHOL 10%, ORIGINAL FLAVOR(ETHANO [Suspect]
     Dosage: AS MUCH AS 4.5 OUNCES ONCE ONLY, ORAL
     Route: 048
  2. PAROXETINE HCL [Concomitant]
  3. SYNTHROID [Concomitant]
  4. THIORIDAZINE HCL [Concomitant]
  5. BACTRIM DS [Concomitant]
  6. CLONIDINE [Concomitant]
  7. OMEPRAZOLE [Concomitant]
  8. TYLENOL EXTENDED RELIEF (PARACETAMOL) [Suspect]
     Indication: SUICIDE ATTEMPT
     Dosage: AS MUCH AS 67 TABLETS ONCE ONLY, ORAL
     Route: 048

REACTIONS (8)
  - MULTIPLE DRUG OVERDOSE INTENTIONAL [None]
  - BLOOD GLUCOSE INCREASED [None]
  - BLOOD POTASSIUM DECREASED [None]
  - BLOOD BICARBONATE DECREASED [None]
  - ANALGESIC DRUG LEVEL INCREASED [None]
  - PROTHROMBIN TIME PROLONGED [None]
  - SUICIDE ATTEMPT [None]
  - ANION GAP INCREASED [None]
